FAERS Safety Report 6102924-6 (Version None)
Quarter: 2009Q1

REPORT INFORMATION
  Report Type: 
  Country: None (occurrence: None)
  Receive Date: 20090303
  Receipt Date: 20090303
  Transmission Date: 20090719
  Serious: Yes (Other)
  Sender: FDA-Public Use
  Company Number: None

PATIENT
  Sex: Female
  Weight: 54.4316 kg

DRUGS (1)
  1. ALTACE [Suspect]
     Indication: HYPERTENSION
     Dosage: 1.25 MG ONCE DAILY PO
     Route: 048
     Dates: start: 20060301, end: 20060308

REACTIONS (2)
  - ANGINA PECTORIS [None]
  - EXTRASYSTOLES [None]
